FAERS Safety Report 24429139 (Version 1)
Quarter: 2024Q4

REPORT INFORMATION
  Report Type: Spontaneous
  Country: NO (occurrence: NO)
  Receive Date: 20241011
  Receipt Date: 20241011
  Transmission Date: 20250114
  Serious: Yes (Death, Hospitalization)
  Sender: REGENERON
  Company Number: None

PATIENT
  Age: 70 Year
  Sex: Male

DRUGS (1)
  1. LIBTAYO [Suspect]
     Active Substance: CEMIPLIMAB-RWLC
     Indication: PD-L1 positive cancer
     Dosage: THE PATIENT RECEIVED ONE LIBTAYO INFUSION (DOSE NOT SPECIFIED)
     Route: 042
     Dates: start: 20240610, end: 20240610

REACTIONS (5)
  - Hepatitis [Fatal]
  - Myocarditis [Fatal]
  - Myositis [Fatal]
  - Myasthenia gravis [Fatal]
  - Respiratory failure [Fatal]

NARRATIVE: CASE EVENT DATE: 20240708
